FAERS Safety Report 5932907-8 (Version None)
Quarter: 2008Q4

REPORT INFORMATION
  Report Type: 
  Country: None (occurrence: None)
  Receive Date: 20081028
  Receipt Date: 20081010
  Transmission Date: 20090506
  Serious: Yes (Hospitalization)
  Sender: FDA-Public Use
  Company Number: 2008BI026917

PATIENT
  Age: 40 Year
  Sex: Female

DRUGS (3)
  1. TYSABRI [Suspect]
     Indication: MULTIPLE SCLEROSIS
     Dosage: 300 MG; QM; IV
     Route: 042
     Dates: start: 20080901, end: 20080901
  2. AVONEX [Concomitant]
  3. ENDOXAN [Concomitant]

REACTIONS (6)
  - ABDOMINAL PAIN [None]
  - EOSINOPHILIA [None]
  - LEUKAEMIA [None]
  - LEUKOCYTOSIS [None]
  - NASOPHARYNGITIS [None]
  - WEIGHT DECREASED [None]
